FAERS Safety Report 10787865 (Version 4)
Quarter: 2015Q2

REPORT INFORMATION
  Report Type: Spontaneous
  Country: US (occurrence: None)
  Receive Date: 20150210
  Receipt Date: 20150518
  Transmission Date: 20150821
  Serious: Yes (Hospitalization, Other)
  Sender: FDA-Public Use
  Company Number: ADR-2015-00280

PATIENT
  Age: 70 Year
  Sex: Female

DRUGS (2)
  1. DILAUDID [Suspect]
     Active Substance: HYDROMORPHONE HYDROCHLORIDE
     Indication: PAIN
  2. LIORESAL [Suspect]
     Active Substance: BACLOFEN
     Indication: PAIN
     Dosage: 7.184MCG/DAY

REACTIONS (60)
  - Cognitive disorder [None]
  - Muscle spasms [None]
  - Depression [None]
  - Gastric ulcer [None]
  - Tenderness [None]
  - Confusion postoperative [None]
  - Nervousness [None]
  - Sedation [None]
  - Diplopia [None]
  - Gastrooesophageal reflux disease [None]
  - Memory impairment [None]
  - Tremor [None]
  - Myelomalacia [None]
  - Osteoporosis [None]
  - Granuloma [None]
  - Arthritis [None]
  - Back pain [None]
  - Duodenal ulcer [None]
  - Kyphosis [None]
  - Muscular weakness [None]
  - Nocturia [None]
  - Visual impairment [None]
  - Asthma [None]
  - Intervertebral disc degeneration [None]
  - Dysphagia [None]
  - Headache [None]
  - Multiple allergies [None]
  - Nuclear magnetic resonance imaging abnormal [None]
  - Myalgia [None]
  - Neck pain [None]
  - Pain [None]
  - Temperature regulation disorder [None]
  - Fall [None]
  - Intestinal obstruction [None]
  - Cough [None]
  - Pyrexia [None]
  - Intervertebral disc protrusion [None]
  - Sinus disorder [None]
  - Infusion site mass [None]
  - Drug intolerance [None]
  - Carpal tunnel syndrome [None]
  - Compression fracture [None]
  - Deafness [None]
  - Diarrhoea [None]
  - Insomnia [None]
  - Vision blurred [None]
  - Pancreatitis [None]
  - Spinal cord compression [None]
  - Syncope [None]
  - Fatigue [None]
  - Muscle tightness [None]
  - Spinal cord oedema [None]
  - Drug withdrawal syndrome [None]
  - Somnolence [None]
  - Urinary retention [None]
  - Nausea [None]
  - Night sweats [None]
  - Sciatica [None]
  - Balance disorder [None]
  - Pain in extremity [None]
